FAERS Safety Report 7207888-X (Version None)
Quarter: 2010Q4

REPORT INFORMATION
  Report Type: 
  Country: None (occurrence: None)
  Receive Date: 20101221
  Receipt Date: 20101203
  Transmission Date: 20110411
  Serious: Yes (Hospitalization)
  Sender: FDA-Public Use
  Company Number: JPI-P-012130(1)

PATIENT
  Age: 70 Year
  Sex: Female
  Weight: 89.8122 kg

DRUGS (26)
  1. XYREM [Suspect]
     Indication: CATAPLEXY
     Dosage: (15 GM (7.5 GM, 2 IN 1 D), ORAL) (6 GM (3 GM, 2, IN 1 D), ORAL) (7.5 GM (3.75 GM, 2 IN 1 D), ORAL)
     Route: 048
     Dates: start: 20100101, end: 20100101
  2. XYREM [Suspect]
     Indication: CATAPLEXY
     Dosage: (15 GM (7.5 GM, 2 IN 1 D), ORAL) (6 GM (3 GM, 2, IN 1 D), ORAL) (7.5 GM (3.75 GM, 2 IN 1 D), ORAL)
     Route: 048
     Dates: start: 20100501, end: 20100101
  3. XYREM [Suspect]
     Indication: CATAPLEXY
     Dosage: (15 GM (7.5 GM, 2 IN 1 D), ORAL) (6 GM (3 GM, 2, IN 1 D), ORAL) (7.5 GM (3.75 GM, 2 IN 1 D), ORAL)
     Route: 048
     Dates: start: 20100101
  4. FUROSEMIDE [Suspect]
     Indication: HYPERTENSION
     Dosage: 80 MG (40 MG, AS NEEDED)
  5. COMBINATION BLOOD PRESSURE AND DIURETIC MEDICATION [Suspect]
     Indication: HYPERTENSION
  6. INSULIN GLARGINE [Concomitant]
  7. LISINOPRIL [Concomitant]
  8. METOPROLOL SUCCINATE [Concomitant]
  9. LEVOTHYROXINE SODIUM [Concomitant]
  10. POTASSIUM CHLORIDE [Concomitant]
  11. ESOMEPRAZOLE [Concomitant]
  12. ATORVASTATIN CALCIUM [Concomitant]
  13. VENLAFAXINE HYDROCHLORIDE [Concomitant]
  14. GLIMEPIRIDE [Concomitant]
  15. LORATADINE [Concomitant]
  16. ASPIRIN [Concomitant]
  17. NITROGLYCERIN [Concomitant]
  18. PIOGLITAZONE [Concomitant]
  19. PREGABALIN [Concomitant]
  20. HYDROCODONE [Concomitant]
  21. MULTI-VITAMIN [Concomitant]
  22. CALCIUM [Concomitant]
  23. LECITHIN [Concomitant]
  24. FISH OIL [Concomitant]
  25. FLAX SEED OIL [Concomitant]
  26. GLUCOSAMINE HYDROCHLORIDE [Concomitant]

REACTIONS (7)
  - ANXIETY [None]
  - ASTHENIA [None]
  - BLOOD SODIUM DECREASED [None]
  - HYPERTENSION [None]
  - LYMPH GLAND INFECTION [None]
  - SIALOADENITIS [None]
  - TREATMENT NONCOMPLIANCE [None]
